FAERS Safety Report 21292476 (Version 1)
Quarter: 2022Q3

REPORT INFORMATION
  Report Type: Spontaneous
  Country: IT (occurrence: IT)
  Receive Date: 20220905
  Receipt Date: 20220905
  Transmission Date: 20221027
  Serious: Yes (Other)
  Sender: FDA-Public Use
  Company Number: IT-GILEAD-2022-0594626

PATIENT
  Age: 48 Year
  Sex: Male

DRUGS (9)
  1. EPCLUSA [Suspect]
     Active Substance: SOFOSBUVIR\VELPATASVIR
     Indication: Chronic hepatitis C
     Dosage: 1 DOSAGE FORM, QD
     Route: 065
     Dates: start: 201809, end: 201812
  2. INDERAL GRADUALE [Concomitant]
  3. PANTOPRAZOLE [Concomitant]
     Active Substance: PANTOPRAZOLE
  4. CANRENOATE POTASSIUM [Concomitant]
     Active Substance: CANRENOATE POTASSIUM
  5. AKINETON [Concomitant]
     Active Substance: BIPERIDEN HYDROCHLORIDE
  6. CLOTHIAPINE [Concomitant]
     Active Substance: CLOTHIAPINE
  7. RIVOTRIL [Concomitant]
     Active Substance: CLONAZEPAM
  8. TRAZODONE HYDROCHLORIDE [Concomitant]
     Active Substance: TRAZODONE HYDROCHLORIDE
  9. SODIUM OXYBATE [Concomitant]
     Active Substance: SODIUM OXYBATE

REACTIONS (2)
  - Hepatitis C [Unknown]
  - Treatment failure [Unknown]
